FAERS Safety Report 12469864 (Version 3)
Quarter: 2016Q3

REPORT INFORMATION
  Report Type: Report from Study
  Country: JP (occurrence: JP)
  Receive Date: 20160615
  Receipt Date: 20160804
  Transmission Date: 20161109
  Serious: Yes (Hospitalization)
  Sender: FDA-Public Use
  Company Number: JP-TAKEDA-2016TJP011940

PATIENT
  Age: 32 Year
  Sex: Male
  Weight: 54 kg

DRUGS (9)
  1. PLACEBO [Suspect]
     Active Substance: UNSPECIFIED INGREDIENT
     Indication: CROHN^S DISEASE
     Dosage: UNKNOWN
     Route: 041
     Dates: start: 20160603, end: 20160603
  2. MIYA-BM [Concomitant]
     Active Substance: CLOSTRIDIUM BUTYRICUM SPORES STRAIN M-55
     Indication: GASTROINTESTINAL DISORDER
     Dosage: 1 G, TID
     Route: 048
  3. MESALAZINE [Concomitant]
     Active Substance: MESALAMINE
     Indication: CROHN^S DISEASE
     Dosage: 2000 MG, BID
     Route: 048
  4. ELENTAL [Concomitant]
     Active Substance: AMINO ACIDS\CARBOHYDRATES\MINERALS\SOYBEAN OIL\VITAMINS
     Indication: CROHN^S DISEASE
     Dosage: 80 G, TID
     Route: 048
     Dates: end: 20160615
  5. LAC-B GRANULAR POWDER N [Concomitant]
     Indication: GASTROINTESTINAL DISORDER
     Dosage: 1 G, TID
     Route: 048
  6. ELENTAL [Concomitant]
     Active Substance: AMINO ACIDS\CARBOHYDRATES\MINERALS\SOYBEAN OIL\VITAMINS
     Dosage: 160 G, UNK
     Route: 048
     Dates: start: 20160720, end: 20160721
  7. ELENTAL [Concomitant]
     Active Substance: AMINO ACIDS\CARBOHYDRATES\MINERALS\SOYBEAN OIL\VITAMINS
     Dosage: 240 G, UNK
     Route: 048
     Dates: start: 20160722
  8. IMURAN [Concomitant]
     Active Substance: AZATHIOPRINE
     Indication: CROHN^S DISEASE
     Dosage: 50 MG, QD
     Route: 048
  9. ELENTAL [Concomitant]
     Active Substance: AMINO ACIDS\CARBOHYDRATES\MINERALS\SOYBEAN OIL\VITAMINS
     Dosage: 80 G, UNK
     Route: 048
     Dates: start: 20160713, end: 20160719

REACTIONS (2)
  - Crohn^s disease [Recovered/Resolved]
  - Anal fistula [Recovered/Resolved]

NARRATIVE: CASE EVENT DATE: 20160609
